FAERS Safety Report 10021201 (Version 2)
Quarter: 2014Q2

REPORT INFORMATION
  Report Type: Spontaneous
  Country: US (occurrence: US)
  Receive Date: 20140319
  Receipt Date: 20140509
  Transmission Date: 20141212
  Serious: No
  Sender: FDA-Public Use
  Company Number: US-PFIZER INC-2014079024

PATIENT
  Age: 66 Year
  Sex: Female
  Weight: 86.17 kg

DRUGS (8)
  1. RELPAX [Suspect]
     Indication: MIGRAINE
     Dosage: 20 MG, AS NEEDED (USUALLY TWO TIMES A DAY)
     Dates: start: 201403
  2. OXYCONTIN [Concomitant]
     Indication: PAIN
     Dosage: 80 MG, UNK
  3. OXYCODONE [Concomitant]
     Indication: PAIN
     Dosage: 60 MG, UNK
  4. ZOCOR [Concomitant]
     Indication: BLOOD CHOLESTEROL INCREASED
     Dosage: UNK
  5. AMLODIPINE [Concomitant]
     Indication: HYPERTENSION
     Dosage: UNK
  6. LEVOTHYROXINE [Concomitant]
     Indication: THYROID DISORDER
     Dosage: UNK
  7. SOMA [Concomitant]
     Indication: MUSCLE RELAXANT THERAPY
     Dosage: UNK
  8. CYMBALTA [Concomitant]
     Dosage: 60 MG, UNK

REACTIONS (1)
  - Drug ineffective [Unknown]
